FAERS Safety Report 19423860 (Version 3)
Quarter: 2021Q3

REPORT INFORMATION
  Report Type: Report from Study
  Country: US (occurrence: US)
  Receive Date: 20210616
  Receipt Date: 20210721
  Transmission Date: 20211014
  Serious: No
  Sender: FDA-Public Use
  Company Number: NVSC2021US132831

PATIENT
  Sex: Female
  Weight: 87.44 kg

DRUGS (4)
  1. SILDENAFIL CITRATE. [Concomitant]
     Active Substance: SILDENAFIL CITRATE
     Indication: PRODUCT USED FOR UNKNOWN INDICATION
     Dosage: UNK
     Route: 065
  2. TREPROSTINIL. [Suspect]
     Active Substance: TREPROSTINIL
     Dosage: 18 NG/KG/MIN, CONTINUOUS
     Route: 042
     Dates: start: 20210413
  3. TREPROSTINIL. [Suspect]
     Active Substance: TREPROSTINIL
     Dosage: 20 NG/KG/MIN, CONTINUOUS
     Route: 042
     Dates: start: 20210413
  4. TREPROSTINIL. [Suspect]
     Active Substance: TREPROSTINIL
     Indication: PULMONARY ARTERIAL HYPERTENSION
     Dosage: 13 NG/KG/MIN, CONT
     Route: 065
     Dates: start: 20210413

REACTIONS (6)
  - Pain in jaw [Unknown]
  - Erythema [Unknown]
  - Rash macular [Unknown]
  - Headache [Unknown]
  - Dermatitis contact [Unknown]
  - Rash [Unknown]
